FAERS Safety Report 21112139 (Version 1)
Quarter: 2022Q3

REPORT INFORMATION
  Report Type: Spontaneous
  Country: US (occurrence: None)
  Receive Date: 20220721
  Receipt Date: 20220721
  Transmission Date: 20221027
  Serious: Yes (Hospitalization, Disabling)
  Sender: FDA-Public Use
  Company Number: None

PATIENT
  Age: 75 Year
  Sex: Male
  Weight: 72 kg

DRUGS (9)
  1. FARXIGA [Suspect]
     Active Substance: DAPAGLIFLOZIN PROPANEDIOL
     Indication: Type 2 diabetes mellitus
     Dosage: OTHER QUANTITY : 90 TABLET(S);?
     Route: 048
  2. METOPROLOL [Concomitant]
  3. ASPIRIN [Concomitant]
     Active Substance: ASPIRIN
  4. METFORMIN [Concomitant]
     Active Substance: METFORMIN HYDROCHLORIDE
  5. GLIMEPIRIDE [Concomitant]
     Active Substance: GLIMEPIRIDE
  6. PREDNISONE [Concomitant]
     Active Substance: PREDNISONE
  7. SENNA [Concomitant]
     Active Substance: SENNA LEAF\SENNOSIDES\SENNOSIDES A AND B
  8. DULCOLAX [Concomitant]
  9. VIT B12 [Concomitant]

REACTIONS (6)
  - Perineal abscess [None]
  - Septic shock [None]
  - Lactic acidosis [None]
  - Fournier^s gangrene [None]
  - Fungal infection [None]
  - Penile infection [None]

NARRATIVE: CASE EVENT DATE: 20220529
